FAERS Safety Report 5749318-0 (Version None)
Quarter: 2008Q2

REPORT INFORMATION
  Report Type: 
  Country: None (occurrence: None)
  Receive Date: 20080527
  Receipt Date: 20080519
  Transmission Date: 20081010
  Serious: Yes (Death)
  Sender: FDA-Public Use
  Company Number: AU-AVENTIS-200812289EU

PATIENT
  Sex: Female

DRUGS (7)
  1. CLEXANE [Suspect]
     Dates: start: 20080204, end: 20080204
  2. CLEXANE [Suspect]
     Dates: start: 20080320, end: 20080320
  3. CLEXANE [Suspect]
     Dates: start: 20080204, end: 20080204
  4. CLEXANE [Suspect]
     Dates: start: 20080320, end: 20080320
  5. BACTRIM [Concomitant]
  6. DEXAMETHASONE TAB [Concomitant]
  7. DOXORUBICIN HCL [Concomitant]

REACTIONS (3)
  - CARDIAC FAILURE [None]
  - RASH [None]
  - SWELLING FACE [None]
